FAERS Safety Report 17389238 (Version 1)
Quarter: 2020Q1

REPORT INFORMATION
  Report Type: Spontaneous
  Country: US (occurrence: US)
  Receive Date: 20200123
  Receipt Date: 20200123
  Transmission Date: 20200409
  Serious: No
  Sender: FDA-Public Use
  Company Number: None

PATIENT
  Age: 39 Year
  Sex: Female
  Weight: 23.98 kg

DRUGS (3)
  1. BUTRANS [Concomitant]
     Active Substance: BUPRENORPHINE
  2. BUPRENORPHINE 10MCG [Suspect]
     Active Substance: BUPRENORPHINE
     Indication: PAIN
     Route: 062
     Dates: start: 20191217
  3. BUPRENORPHINE 5 MCG [Suspect]
     Active Substance: BUPRENORPHINE
     Indication: MYALGIA
     Route: 062
     Dates: start: 20190115, end: 20190502

REACTIONS (3)
  - Product adhesion issue [None]
  - Urticaria [None]
  - Therapeutic product effect decreased [None]
